FAERS Safety Report 6025442-2 (Version None)
Quarter: 2008Q4

REPORT INFORMATION
  Report Type: 
  Country: None (occurrence: None)
  Receive Date: 20081224
  Receipt Date: 20081216
  Transmission Date: 20090506
  Serious: Yes (Life-Threatening)
  Sender: FDA-Public Use
  Company Number: 2008-188588-NL

PATIENT
  Sex: Male

DRUGS (2)
  1. ROCURONIUM BROMIDE [Suspect]
     Dosage: 10 MG ONCE
  2. MIDAZOLAM HCL [Suspect]

REACTIONS (3)
  - ARRHYTHMIA [None]
  - RESPIRATORY DISTRESS [None]
  - WRONG DRUG ADMINISTERED [None]
